FAERS Safety Report 7556860-9 (Version None)
Quarter: 2011Q2

REPORT INFORMATION
  Report Type: 
  Country: None (occurrence: None)
  Receive Date: 20110620
  Receipt Date: 20110616
  Transmission Date: 20111010
  Serious: Yes (Hospitalization, Other)
  Sender: FDA-Public Use
  Company Number: US-PFIZER INC-2011122290

PATIENT
  Sex: Male
  Weight: 72.6 kg

DRUGS (2)
  1. CHANTIX [Suspect]
     Dosage: 0.5 MG, 2X/DAY
     Route: 048
     Dates: start: 20110505, end: 20110508
  2. CHANTIX [Suspect]
     Indication: SMOKING CESSATION THERAPY
     Dosage: 0.5 MG, 1X/DAY
     Route: 048
     Dates: start: 20110502, end: 20110504

REACTIONS (5)
  - IRRITABLE BOWEL SYNDROME [None]
  - DEPRESSION [None]
  - ABDOMINAL DISCOMFORT [None]
  - ANXIETY [None]
  - PANIC ATTACK [None]
